FAERS Safety Report 6879855-7 (Version None)
Quarter: 2010Q3

REPORT INFORMATION
  Report Type: 
  Country: None (occurrence: None)
  Receive Date: 20100728
  Receipt Date: 20100721
  Transmission Date: 20110219
  Serious: Yes (Hospitalization, Other)
  Sender: FDA-Public Use
  Company Number: US-ASTRAZENECA-2010SE34029

PATIENT
  Age: 65 Year
  Sex: Female

DRUGS (7)
  1. NEXIUM [Suspect]
     Indication: GASTROOESOPHAGEAL REFLUX DISEASE
     Route: 048
     Dates: start: 20010101
  2. METFORMIN HCL [Concomitant]
  3. PLAVIX [Concomitant]
  4. IMDUR [Concomitant]
     Route: 048
  5. ASPIRIN [Concomitant]
  6. PAXIL [Concomitant]
  7. GABAPENTIN [Concomitant]

REACTIONS (5)
  - CHOLELITHIASIS [None]
  - HERNIA REPAIR [None]
  - HYSTERECTOMY [None]
  - LUNG LOBECTOMY [None]
  - LUNG NEOPLASM MALIGNANT [None]
